FAERS Safety Report 7058538-7 (Version None)
Quarter: 2010Q4

REPORT INFORMATION
  Report Type: 
  Country: None (occurrence: None)
  Receive Date: 20101022
  Receipt Date: 20101015
  Transmission Date: 20110411
  Serious: Yes (Hospitalization)
  Sender: FDA-Public Use
  Company Number: A0810031A

PATIENT
  Age: 61 Year
  Sex: Male
  Weight: 86.4 kg

DRUGS (10)
  1. AVANDIA [Suspect]
     Dosage: 4MG TWICE PER DAY
     Route: 048
     Dates: start: 19990721, end: 20060101
  2. AVANDAMET [Suspect]
     Indication: DIABETES MELLITUS
     Route: 048
     Dates: start: 20040404
  3. METFORMIN [Concomitant]
  4. FOSINOPRIL SODIUM [Concomitant]
  5. ZOCOR [Concomitant]
  6. DIABETA [Concomitant]
  7. NEURONTIN [Concomitant]
  8. UROXATRAL [Concomitant]
  9. LEVITRA [Concomitant]
  10. CIALIS [Concomitant]

REACTIONS (3)
  - CARDIAC FAILURE [None]
  - CORONARY ARTERY DISEASE [None]
  - MYOCARDIAL INFARCTION [None]
